FAERS Safety Report 17110729 (Version 1)
Quarter: 2019Q4

REPORT INFORMATION
  Report Type: Report from Study
  Country: FR (occurrence: FR)
  Receive Date: 20191204
  Receipt Date: 20191204
  Transmission Date: 20200122
  Serious: Yes (Life-Threatening, Hospitalization)
  Sender: FDA-Public Use
  Company Number: FR-IPSEN BIOPHARMACEUTICALS, INC.-2019-23938

PATIENT
  Age: 69 Year
  Sex: Male
  Weight: 62 kg

DRUGS (4)
  1. AFINITOR [Suspect]
     Active Substance: EVEROLIMUS
     Indication: PANCREATIC NEUROENDOCRINE TUMOUR
     Dosage: 10 MG, QD
     Dates: start: 20160111, end: 20170909
  2. LANREOTIDE OR COMPARATOR [Suspect]
     Active Substance: LANREOTIDE
     Indication: PANCREATIC NEUROENDOCRINE TUMOUR
     Dosage: 120 MG, QMO (EVERY 28 DAYS)
     Route: 065
     Dates: start: 20150914
  3. ELOXATIN [Concomitant]
     Active Substance: OXALIPLATIN
     Indication: PRODUCT USED FOR UNKNOWN INDICATION
     Dosage: UNK
     Dates: start: 20150914, end: 20171213
  4. DIAZOXIDE [Concomitant]
     Active Substance: DIAZOXIDE
     Indication: INSULINOMA
     Dates: start: 20160111

REACTIONS (3)
  - Oedema peripheral [Recovered/Resolved]
  - Phlebitis [Not Recovered/Not Resolved]
  - Venous thrombosis limb [Recovering/Resolving]

NARRATIVE: CASE EVENT DATE: 20160306
